FAERS Safety Report 24288972 (Version 1)
Quarter: 2024Q3

REPORT INFORMATION
  Report Type: Spontaneous
  Country: CN (occurrence: CN)
  Receive Date: 20240906
  Receipt Date: 20240906
  Transmission Date: 20241017
  Serious: Yes (Hospitalization)
  Sender: BEIGENE
  Company Number: CN-BEIGENE-BGN-2024-013732

PATIENT

DRUGS (5)
  1. TISLELIZUMAB [Suspect]
     Active Substance: TISLELIZUMAB
     Indication: Small cell lung cancer
     Dosage: 200 MILLIGRAM, Q3WK
     Route: 041
     Dates: start: 20240729
  2. ETOPOSIDE [Concomitant]
     Active Substance: ETOPOSIDE
     Indication: Small cell lung cancer
     Dosage: 0.1 GRAM D1 (FIRST-LINE THE SECOND TIME)
     Dates: start: 20240728
  3. SODIUM CHLORIDE [Concomitant]
     Active Substance: SODIUM CHLORIDE
     Indication: Small cell lung cancer
     Dosage: 500 MILLILITER (FIRST-LINE THE SECOND TIME)
     Dates: start: 20240728
  4. CARBOPLATIN [Concomitant]
     Active Substance: CARBOPLATIN
     Indication: Small cell lung cancer
     Dosage: 400 MILLIGRAM (FIRST-LINE THE SECOND TIME)
     Dates: start: 20240728
  5. DEXTROSE [Concomitant]
     Active Substance: DEXTROSE\DEXTROSE MONOHYDRATE
     Indication: Small cell lung cancer
     Dosage: 500 MILLILITER D2 (FIRST-LINE THE SECOND TIME)
     Dates: start: 20240728

REACTIONS (3)
  - Hallucination [Recovering/Resolving]
  - Memory impairment [Recovering/Resolving]
  - Disorientation [Recovering/Resolving]

NARRATIVE: CASE EVENT DATE: 20240823
